FAERS Safety Report 15281055 (Version 2)
Quarter: 2022Q1

REPORT INFORMATION
  Report Type: Spontaneous
  Country: DE (occurrence: DE)
  Receive Date: 20180815
  Receipt Date: 20220204
  Transmission Date: 20220423
  Serious: Yes (Other)
  Sender: FDA-Public Use
  Company Number: DE-TEVA-2018-DE-943146

PATIENT
  Age: 74 Year
  Sex: Male

DRUGS (11)
  1. ROCURONIUM [Interacting]
     Active Substance: ROCURONIUM BROMIDE
     Indication: Neuromuscular blocking therapy
     Route: 042
  2. REMIFENTANIL [Suspect]
     Active Substance: REMIFENTANIL
     Route: 050
  3. REMIFENTANIL [Suspect]
     Active Substance: REMIFENTANIL
     Route: 050
  4. TAMSULOSIN [Suspect]
     Active Substance: TAMSULOSIN
     Indication: Benign prostatic hyperplasia
     Route: 065
  5. EPINEPHRINE [Interacting]
     Active Substance: EPINEPHRINE
     Indication: Blood pressure decreased
     Dosage: THREE BOLUSES WERE GIVEN
     Route: 040
  6. EPINEPHRINE [Interacting]
     Active Substance: EPINEPHRINE
     Indication: Heart rate decreased
  7. ATROPINE [Suspect]
     Active Substance: ATROPINE
     Indication: Blood pressure decreased
     Route: 065
  8. ATROPINE [Suspect]
     Active Substance: ATROPINE
     Indication: Heart rate decreased
  9. Dikaliumchlorazepat [Concomitant]
     Indication: Premedication
     Route: 048
  10. PROPOFOL [Concomitant]
     Active Substance: PROPOFOL
     Indication: Anaesthesia
     Route: 041
  11. FENTANYL [Concomitant]
     Active Substance: FENTANYL
     Indication: Anaesthesia
     Route: 042

REACTIONS (5)
  - Bradycardia [Recovering/Resolving]
  - Neuromuscular block prolonged [Recovered/Resolved]
  - Drug interaction [Recovered/Resolved]
  - Hypotension [Recovering/Resolving]
  - Drug ineffective [Unknown]
